FAERS Safety Report 20764175 (Version 1)
Quarter: 2022Q2

REPORT INFORMATION
  Report Type: Spontaneous
  Country: FR (occurrence: FR)
  Receive Date: 20220428
  Receipt Date: 20220428
  Transmission Date: 20220721
  Serious: Yes (Disabling)
  Sender: FDA-Public Use
  Company Number: None

PATIENT
  Age: 57 Year
  Sex: Female
  Weight: 51 kg

DRUGS (3)
  1. TAFINLAR [Suspect]
     Active Substance: DABRAFENIB MESYLATE
     Indication: Acral lentiginous melanoma stage III
     Dosage: 300 MG, QD
     Route: 048
     Dates: start: 20200122, end: 20210130
  2. MEKINIST [Suspect]
     Active Substance: TRAMETINIB DIMETHYL SULFOXIDE
     Indication: Acral lentiginous melanoma stage III
     Dosage: 2 MG, QD
     Route: 048
     Dates: start: 20200122, end: 20210130
  3. CELESTENE [Concomitant]
     Indication: Oral lichen planus
     Dosage: EN BAIN DE BOUCHE
     Route: 002
     Dates: start: 20191203

REACTIONS (2)
  - Pruritus [Recovered/Resolved]
  - Erythema nodosum [Recovered/Resolved]

NARRATIVE: CASE EVENT DATE: 20200305
